FAERS Safety Report 18052392 (Version 1)
Quarter: 2020Q3

REPORT INFORMATION
  Report Type: Spontaneous
  Country: US (occurrence: US)
  Receive Date: 20200721
  Receipt Date: 20200721
  Transmission Date: 20201103
  Serious: Yes (Hospitalization)
  Sender: FDA-Public Use
  Company Number: US-VIFOR (INTERNATIONAL) INC.-VIT-2020-07885

PATIENT
  Age: 67 Year
  Sex: Male

DRUGS (13)
  1. B?COMP/VITAMIN?B12 [Concomitant]
     Dates: start: 20190319
  2. SODIUM BICARBONATE. [Concomitant]
     Active Substance: SODIUM BICARBONATE
     Dates: start: 20190319
  3. AMLOD/BENAZP [Concomitant]
     Dosage: 10?40 MG
     Dates: start: 20200319
  4. DOXAZOSIN [Concomitant]
     Active Substance: DOXAZOSIN MESYLATE
     Dates: start: 20190319
  5. MULTI?DAY [Concomitant]
     Dates: start: 20190319
  6. VITAMIN?A [Concomitant]
     Active Substance: VITAMIN A
     Dosage: 8000 UNIT
     Dates: start: 20190319
  7. ATENOLOL. [Concomitant]
     Active Substance: ATENOLOL
     Dates: start: 20190319
  8. LEVOTHYROXINE. [Concomitant]
     Active Substance: LEVOTHYROXINE
     Dates: start: 20190319
  9. BILBERRY [Concomitant]
     Active Substance: BILBERRY
     Dates: start: 20190319
  10. METFORMIN [Concomitant]
     Active Substance: METFORMIN HYDROCHLORIDE
     Dates: start: 20190319
  11. TURMERIC [Concomitant]
     Active Substance: HERBALS\TURMERIC
     Dates: start: 20190319
  12. VITAMIN?D [Concomitant]
     Active Substance: VITAMIN D NOS
     Dosage: 2000 UNIT
     Dates: start: 20190319
  13. VELTASSA [Suspect]
     Active Substance: PATIROMER
     Indication: HYPERKALAEMIA
     Route: 048
     Dates: start: 20200428

REACTIONS (2)
  - Product dose omission in error [Unknown]
  - Gastrectomy [Unknown]

NARRATIVE: CASE EVENT DATE: 2020
